FAERS Safety Report 12127414 (Version 2)
Quarter: 2016Q1

REPORT INFORMATION
  Report Type: Spontaneous
  Country: TR (occurrence: TR)
  Receive Date: 20160229
  Receipt Date: 20160301
  Transmission Date: 20160526
  Serious: Yes (Other)
  Sender: FDA-Public Use
  Company Number: TR-WATSON-2016-03945

PATIENT
  Age: 34 Year
  Sex: Female

DRUGS (2)
  1. PROGESTERONE (IN SESAME OIL) (ACTAVIS LABORATORIES UT, INC.) [Suspect]
     Active Substance: PROGESTERONE
     Indication: PRODUCT USED FOR UNKNOWN INDICATION
     Dosage: UNK
     Route: 065
  2. PROGESTERONE (IN SESAME OIL) (ACTAVIS LABORATORIES UT, INC.) [Suspect]
     Active Substance: PROGESTERONE
     Dosage: UNK UNK, 1/WEEK
     Route: 065

REACTIONS (3)
  - Condition aggravated [Unknown]
  - Maternal exposure during pregnancy [Unknown]
  - Erythema dyschromicum perstans [Unknown]
